FAERS Safety Report 15824980 (Version 4)
Quarter: 2020Q3

REPORT INFORMATION
  Report Type: Other
  Country: CA (occurrence: CA)
  Receive Date: 20190115
  Receipt Date: 20200723
  Transmission Date: 20201102
  Serious: Yes (Other)
  Sender: FDA-Public Use
  Company Number: CA-ROCHE-2245764

PATIENT
  Age: 40 Year
  Sex: Female

DRUGS (10)
  1. LORATADINE. [Concomitant]
     Active Substance: LORATADINE
     Dosage: ONGOING
  2. OCREVUS [Suspect]
     Active Substance: OCRELIZUMAB
     Route: 042
  3. FLOVENT [Concomitant]
     Active Substance: FLUTICASONE PROPIONATE
     Dosage: ONGOING
  4. TRINTELLIX [Concomitant]
     Active Substance: VORTIOXETINE HYDROBROMIDE
     Indication: DEPRESSION
     Dosage: ONGOING
  5. CYCLEN [Concomitant]
     Active Substance: ETHINYL ESTRADIOL\NORGESTIMATE
  6. IBUPROFEN. [Concomitant]
     Active Substance: IBUPROFEN
     Dosage: ONGOING
  7. SALBUTAMOL [Concomitant]
     Active Substance: ALBUTEROL
     Dosage: ONGOING
  8. CLARITIN [Concomitant]
     Active Substance: LORATADINE
  9. OCREVUS [Suspect]
     Active Substance: OCRELIZUMAB
     Indication: RELAPSING-REMITTING MULTIPLE SCLEROSIS
     Route: 042
     Dates: start: 20171128
  10. ROBAX PLATINUM [Concomitant]
     Active Substance: IBUPROFEN\METHOCARBAMOL
     Dosage: ONGOING

REACTIONS (5)
  - Asthma [Not Recovered/Not Resolved]
  - Nasopharyngitis [Recovering/Resolving]
  - Decreased vibratory sense [Unknown]
  - Rhinorrhoea [Recovered/Resolved]
  - Cough [Unknown]

NARRATIVE: CASE EVENT DATE: 201812
